FAERS Safety Report 10975571 (Version 1)
Quarter: 2015Q2

REPORT INFORMATION
  Report Type: Spontaneous
  Country: US (occurrence: US)
  Receive Date: 20150401
  Receipt Date: 20150401
  Transmission Date: 20150821
  Serious: No
  Sender: FDA-Public Use
  Company Number: US-GLAXOSMITHKLINE-US2015GSK043246

PATIENT
  Sex: Male

DRUGS (1)
  1. NICOTINE UNKNOWN BRAND TRANSDERMAL PATCH [Suspect]
     Active Substance: NICOTINE
     Route: 062

REACTIONS (1)
  - Abnormal dreams [Unknown]
